FAERS Safety Report 8086607-1 (Version None)
Quarter: 2012Q1

REPORT INFORMATION
  Report Type: 
  Country: None (occurrence: None)
  Receive Date: 20120128
  Receipt Date: 20110517
  Transmission Date: 20120608
  Serious: No
  Sender: FDA-Public Use
  Company Number: US-ABBOTT-11P-163-0726273-00

PATIENT
  Sex: Female

DRUGS (3)
  1. SULFASALINE [Concomitant]
     Indication: RHEUMATOID ARTHRITIS
  2. AMLODIPINE [Concomitant]
     Indication: PRINZMETAL ANGINA
  3. HUMIRA [Suspect]
     Indication: RHEUMATOID ARTHRITIS
     Route: 058
     Dates: start: 20101101

REACTIONS (1)
  - NASOPHARYNGITIS [None]
